FAERS Safety Report 8309304-3 (Version None)
Quarter: 2012Q2

REPORT INFORMATION
  Report Type: 
  Country: None (occurrence: None)
  Receive Date: 20120425
  Receipt Date: 20120412
  Transmission Date: 20120825
  Serious: Yes (Other)
  Sender: FDA-Public Use
  Company Number: TW-BRISTOL-MYERS SQUIBB COMPANY-16525701

PATIENT
  Age: 72 Year
  Sex: Female

DRUGS (3)
  1. VALPROIC ACID [Concomitant]
     Indication: CONVULSION
     Dosage: 2 WEEKS
  2. METFORMIN HCL [Suspect]
     Indication: HYPERGLYCAEMIA
     Route: 048
  3. GLIMEPIRIDE [Suspect]
     Indication: HYPERGLYCAEMIA
     Route: 048

REACTIONS (1)
  - CEREBRAL ATROPHY [None]
